FAERS Safety Report 19056771 (Version 2)
Quarter: 2021Q2

REPORT INFORMATION
  Report Type: Spontaneous
  Country: FI (occurrence: FI)
  Receive Date: 20210325
  Receipt Date: 20210420
  Transmission Date: 20210717
  Serious: No
  Sender: FDA-Public Use
  Company Number: FI-ROCHE-2797476

PATIENT
  Age: 70 Year
  Sex: Male

DRUGS (6)
  1. ROACTEMRA [Suspect]
     Active Substance: TOCILIZUMAB
     Indication: GIANT CELL ARTERITIS
     Dosage: ROACTEMRA WAS STOPPED AFTER DIAGNOSIS OF PROSTATE CANCER.
     Route: 042
     Dates: start: 20201106
  2. METHOTREXATE. [Concomitant]
     Active Substance: METHOTREXATE
  3. FIRMAGON [Concomitant]
     Active Substance: DEGARELIX ACETATE
     Indication: PROSTATE CANCER
     Route: 058
     Dates: start: 202012
  4. ROACTEMRA [Suspect]
     Active Substance: TOCILIZUMAB
     Route: 042
     Dates: start: 20210319
  5. FIRMAGON [Concomitant]
     Active Substance: DEGARELIX ACETATE
     Route: 058
  6. PREDNISOLONE. [Concomitant]
     Active Substance: PREDNISOLONE

REACTIONS (2)
  - No adverse event [Unknown]
  - Off label use [Unknown]

NARRATIVE: CASE EVENT DATE: 20201106
